FAERS Safety Report 6749232-8 (Version None)
Quarter: 2010Q2

REPORT INFORMATION
  Report Type: 
  Country: None (occurrence: None)
  Receive Date: 20100601
  Receipt Date: 20100526
  Transmission Date: 20101027
  Serious: No
  Sender: FDA-Public Use
  Company Number: US-BAYER-201016032BCC

PATIENT
  Sex: Male

DRUGS (1)
  1. ALEVE (CAPLET) [Suspect]
     Indication: NECK PAIN
     Dosage: UNIT DOSE: 220 MG
     Route: 048

REACTIONS (4)
  - HYPERSENSITIVITY [None]
  - OEDEMA MOUTH [None]
  - PENILE ULCERATION [None]
  - STOMATITIS [None]
